FAERS Safety Report 15755169 (Version 2)
Quarter: 2019Q1

REPORT INFORMATION
  Report Type: Spontaneous
  Country: FR (occurrence: FR)
  Receive Date: 20181224
  Receipt Date: 20190128
  Transmission Date: 20190417
  Serious: Yes (Other)
  Sender: FDA-Public Use
  Company Number: FR-AUROBINDO-AUR-APL-2018-061078

PATIENT
  Age: 44 Year
  Sex: Female

DRUGS (13)
  1. PROPOFOL. [Suspect]
     Active Substance: PROPOFOL
     Dosage: PT, IDR 10-1, PURE UNK
  2. TRACRIUM [Suspect]
     Active Substance: ATRACURIUM BESYLATE
     Indication: ANAESTHESIA
     Dosage: UNK
     Route: 041
     Dates: start: 20181001, end: 20181001
  3. LIDOCAINE. [Suspect]
     Active Substance: LIDOCAINE
     Indication: ANAESTHESIA
     Dosage: UNK
     Route: 041
     Dates: start: 20181001, end: 20181001
  4. LIDOCAINE. [Suspect]
     Active Substance: LIDOCAINE
     Dosage: PT, IDR 10-1, PURE
  5. CEFAZOLINE [Suspect]
     Active Substance: CEFAZOLIN SODIUM
     Dosage: PT 20MG/L : 3MM, IDR 0.02MG/ML, 0.2MG/ML, 2MG/
     Route: 065
     Dates: start: 20181113
  6. TRACRIUM [Suspect]
     Active Substance: ATRACURIUM BESYLATE
     Dosage: PURE PT, IDR 0.01MG/ML, 0.1MG/ML
     Route: 065
     Dates: start: 20181113
  7. KETAMINE [Suspect]
     Active Substance: KETAMINE
     Dosage: UNK
     Route: 065
     Dates: start: 20181113
  8. DEXDOR [Suspect]
     Active Substance: DEXMEDETOMIDINE HYDROCHLORIDE
     Indication: ANAESTHESIA
     Dosage: UNK
     Route: 041
     Dates: start: 20181001, end: 20181001
  9. ATARAX [Concomitant]
     Active Substance: HYDROXYZINE HYDROCHLORIDE
     Indication: PRODUCT USED FOR UNKNOWN INDICATION
     Dosage: UNK
     Route: 048
  10. AVLOCARDYL [Concomitant]
     Active Substance: PROPRANOLOL HYDROCHLORIDE
     Indication: PRODUCT USED FOR UNKNOWN INDICATION
     Dosage: UNK
     Route: 048
  11. CEFAZOLINE [Suspect]
     Active Substance: CEFAZOLIN SODIUM
     Indication: ANTIBIOTIC PROPHYLAXIS
     Dosage: UNK
     Route: 041
     Dates: start: 20181001, end: 20181001
  12. PROPOFOL. [Suspect]
     Active Substance: PROPOFOL
     Indication: ANAESTHESIA
     Dosage: UNK
     Route: 041
     Dates: start: 20181001, end: 20181001
  13. KETAMINE [Suspect]
     Active Substance: KETAMINE
     Indication: ANAESTHESIA
     Dosage: UNK
     Route: 041
     Dates: start: 20181001, end: 20181001

REACTIONS (1)
  - Anaphylactic shock [Recovered/Resolved]

NARRATIVE: CASE EVENT DATE: 20181001
